FAERS Safety Report 6955362-8 (Version None)
Quarter: 2010Q3

REPORT INFORMATION
  Report Type: 
  Country: None (occurrence: None)
  Receive Date: 20100830
  Receipt Date: 20100818
  Transmission Date: 20110219
  Serious: Yes (Hospitalization)
  Sender: FDA-Public Use
  Company Number: IT-ELI_LILLY_AND_COMPANY-IT201008005321

PATIENT
  Sex: Male

DRUGS (1)
  1. ALIMTA [Suspect]
     Indication: ADENOCARCINOMA
     Dosage: 800 MG, DAILY (1/D)
     Route: 065
     Dates: start: 20100603

REACTIONS (3)
  - HYPERPYREXIA [None]
  - MALAISE [None]
  - PRODUCTIVE COUGH [None]
